FAERS Safety Report 9803503 (Version 1)
Quarter: 2014Q1

REPORT INFORMATION
  Report Type: Spontaneous
  Country: US (occurrence: US)
  Receive Date: 20140108
  Receipt Date: 20140108
  Transmission Date: 20141002
  Serious: Yes (Death, Hospitalization, Other)
  Sender: FDA-Public Use
  Company Number: US-UCBSA-108518

PATIENT
  Age: 18 Year
  Sex: Female

DRUGS (3)
  1. ACETAMINOPHEN /HYDROCODONE [Suspect]
     Dosage: ROUTE: INGESTION/ASPIRATION
  2. ACETAMINOPHEN/PHENYLEPHRINE [Suspect]
     Dosage: ROUTE: INGESTION/ASPIRATION
  3. ACETAMINOPHEN/PHENYLEPHRINE [Suspect]

REACTIONS (1)
  - Completed suicide [Fatal]
